FAERS Safety Report 14390612 (Version 5)
Quarter: 2019Q1

REPORT INFORMATION
  Report Type: Report from Study
  Country: JP (occurrence: JP)
  Receive Date: 20180116
  Receipt Date: 20190325
  Transmission Date: 20190417
  Serious: Yes (Death, Other)
  Sender: FDA-Public Use
  Company Number: JP-AMGEN-JPNSP2018005658

PATIENT
  Age: 70 Year
  Sex: Male
  Weight: 39.1 kg

DRUGS (7)
  1. VALACICLOVIR HYDROCHLORIDE [Concomitant]
     Active Substance: VALACYCLOVIR HYDROCHLORIDE
     Indication: ANTIVIRAL PROPHYLAXIS
     Dosage: 500 MILLIGRAM
     Route: 048
     Dates: start: 20171221
  2. CARFILZOMIB [Suspect]
     Active Substance: CARFILZOMIB
     Dosage: 56 MILLIGRAM/SQ. METER
     Route: 041
     Dates: start: 20171117, end: 20171125
  3. DEXAMETHASONE. [Suspect]
     Active Substance: DEXAMETHASONE
     Indication: PLASMA CELL MYELOMA
     Dosage: 20 MILLIGRAM
     Route: 065
     Dates: start: 20171110, end: 20171214
  4. CARFILZOMIB [Suspect]
     Active Substance: CARFILZOMIB
     Indication: PLASMA CELL MYELOMA
     Dosage: 20 MILLIGRAM/SQ. METER, QD (EVERYDAY)
     Route: 041
     Dates: start: 20171110, end: 20171111
  5. CARFILZOMIB [Suspect]
     Active Substance: CARFILZOMIB
     Dosage: 45 MILLIGRAM/SQ. METER, QD (EVERYDAY)
     Route: 041
     Dates: start: 20171213, end: 20171214
  6. CORTRIL [HYDROCORTISONE] [Suspect]
     Active Substance: HYDROCORTISONE
     Indication: PRODUCT USED FOR UNKNOWN INDICATION
     Dosage: UNK
     Route: 065
  7. BARACLUDE [Concomitant]
     Active Substance: ENTECAVIR
     Indication: PRODUCT USED FOR UNKNOWN INDICATION
     Dosage: 0.5 MILLIGRAM
     Route: 048

REACTIONS (7)
  - Hepatitis B reactivation [Unknown]
  - Hypoxia [None]
  - Hypopnoea [None]
  - Fatigue [Recovering/Resolving]
  - Amylase increased [Recovering/Resolving]
  - Asthenia [Fatal]
  - Platelet count decreased [Recovering/Resolving]

NARRATIVE: CASE EVENT DATE: 20171114
